FAERS Safety Report 11650879 (Version 2)
Quarter: 2015Q4

REPORT INFORMATION
  Report Type: Spontaneous
  Country: BR (occurrence: BR)
  Receive Date: 20151021
  Receipt Date: 20151022
  Transmission Date: 20160304
  Serious: Yes (Other)
  Sender: FDA-Public Use
  Company Number: BR-ASTRAZENECA-2015SE99369

PATIENT
  Age: 61 Year
  Sex: Male

DRUGS (12)
  1. DAPAGLIFLOZIN+METFORMIN [Suspect]
     Active Substance: DAPAGLIFLOZIN PROPANEDIOL\METFORMIN HYDROCHLORIDE
     Dosage: 10 MG/ 2 GM/ DAY
     Route: 048
  2. INSULIN GLARGINE [Concomitant]
     Active Substance: INSULIN GLARGINE
     Dosage: 28 U/ DAY
  3. VALSARTAN. [Concomitant]
     Active Substance: VALSARTAN
     Dosage: 320 MG/ DAY
  4. DAPAGLIFLOZIN [Suspect]
     Active Substance: DAPAGLIFLOZIN
     Dosage: 1 TABLET ON BREAKFAST
     Route: 048
  5. ROSUVASTATIN [Suspect]
     Active Substance: ROSUVASTATIN
     Route: 048
  6. METFORMIN [Suspect]
     Active Substance: METFORMIN HYDROCHLORIDE
     Dosage: METFORMIN XR 1000 MG 2 TABLETS AFTER DINNER, NON-AZ PRODUCT
     Route: 065
  7. GLICLAZIDE [Concomitant]
     Active Substance: GLICLAZIDE
     Dosage: MR 60 MG ( 2 TABLETS. EVERY MORNING)
  8. VALSARTAN. [Concomitant]
     Active Substance: VALSARTAN
     Dosage: 160 MG /DAY
  9. INSULIN GLARGINE [Concomitant]
     Active Substance: INSULIN GLARGINE
     Dosage: 34 U/ DAY
  10. INSULIN GLARGINE [Concomitant]
     Active Substance: INSULIN GLARGINE
     Dosage: 40 U IN THE MORNING
  11. ROSUVASTATIN [Suspect]
     Active Substance: ROSUVASTATIN
     Route: 048
  12. PIOGLITAZONE. [Concomitant]
     Active Substance: PIOGLITAZONE
     Dosage: 45 MG ( 1 TABLETE AT LUNCH)

REACTIONS (2)
  - Diabetes mellitus [Unknown]
  - Weight decreased [Unknown]
